FAERS Safety Report 15073856 (Version 1)
Quarter: 2018Q2

REPORT INFORMATION
  Report Type: Spontaneous
  Country: GB (occurrence: GB)
  Receive Date: 20180627
  Receipt Date: 20180627
  Transmission Date: 20180711
  Serious: Yes (Other)
  Sender: FDA-Public Use
  Company Number: GB-US WORLDMEDS, LLC-E2B_00002740

PATIENT
  Age: 69 Year
  Sex: Female

DRUGS (5)
  1. XADAGO [Suspect]
     Active Substance: SAFINAMIDE MESYLATE
     Route: 048
     Dates: start: 20180402, end: 20180404
  2. ROPINIROLE MR [Concomitant]
     Indication: PRODUCT USED FOR UNKNOWN INDICATION
  3. XADAGO [Suspect]
     Active Substance: SAFINAMIDE MESYLATE
     Indication: PARKINSON^S DISEASE
     Route: 048
     Dates: start: 20180328, end: 20180401
  4. XADAGO [Suspect]
     Active Substance: SAFINAMIDE MESYLATE
     Route: 048
     Dates: start: 20180405
  5. LEVODOPA [Concomitant]
     Active Substance: LEVODOPA
     Indication: PARKINSON^S DISEASE

REACTIONS (5)
  - Parkinson^s disease [Recovered/Resolved]
  - Nausea [Recovered/Resolved]
  - Feeling drunk [Recovered/Resolved]
  - Gait disturbance [Recovered/Resolved]
  - Dizziness [Recovered/Resolved]

NARRATIVE: CASE EVENT DATE: 2018
